FAERS Safety Report 8935719 (Version 1)
Quarter: 2012Q4

REPORT INFORMATION
  Report Type: 
  Country: MX (occurrence: MX)
  Receive Date: 20121130
  Receipt Date: 20121130
  Transmission Date: 20130627
  Serious: Yes (Hospitalization)
  Sender: FDA-Public Use
  Company Number: PHHY2012MX107858

PATIENT
  Age: 72 Year
  Sex: Female

DRUGS (4)
  1. DIOVAN [Suspect]
     Indication: HYPERTENSION
     Dosage: 1 DF, daily
     Route: 048
     Dates: start: 2002, end: 20121104
  2. TENORMIN [Concomitant]
     Indication: BLOOD PRESSURE
     Dosage: 1 DF, daily
     Dates: start: 2002
  3. CINARIZINE [Concomitant]
     Indication: BLOOD PRESSURE
     Dosage: 1 DF, daily
     Dates: start: 2002
  4. ATEMPERATOR [Concomitant]
     Indication: CONVULSION
     Dosage: 1 DF (1 in morning and 1 at night), BID
     Dates: start: 201209

REACTIONS (6)
  - Dehydration [Unknown]
  - Mental disorder [Unknown]
  - Speech disorder [Unknown]
  - Blood sodium decreased [Unknown]
  - Blood potassium decreased [Unknown]
  - Insomnia [Unknown]
